FAERS Safety Report 4733914-3 (Version None)
Quarter: 2005Q3

REPORT INFORMATION
  Report Type: 
  Country: None (occurrence: None)
  Receive Date: 20050729
  Receipt Date: 20050715
  Transmission Date: 20060218
  Serious: Yes (Other)
  Sender: FDA-Public Use
  Company Number: L05-USA-02604-01

PATIENT
  Age: 55 Year
  Sex: Female

DRUGS (1)
  1. CARBAMAZEPINE [Suspect]
     Indication: CONVULSION

REACTIONS (1)
  - ATRIOVENTRICULAR BLOCK COMPLETE [None]
